FAERS Safety Report 15735623 (Version 1)
Quarter: 2018Q4

REPORT INFORMATION
  Report Type: Report from Study
  Country: MX (occurrence: MX)
  Receive Date: 20181218
  Receipt Date: 20181218
  Transmission Date: 20190205
  Serious: Yes (Hospitalization, Other)
  Sender: FDA-Public Use
  Company Number: MX-BOSCOGEN, INC.-2060309

PATIENT
  Age: 54 Year
  Sex: Female

DRUGS (3)
  1. CLINDAMYCIN. [Concomitant]
     Active Substance: CLINDAMYCIN
  2. DICLOXACILINE [Concomitant]
  3. ACYCLOVIR. [Suspect]
     Active Substance: ACYCLOVIR
     Indication: TOOTH ABSCESS
     Route: 048

REACTIONS (4)
  - Acute kidney injury [None]
  - Tubulointerstitial nephritis [None]
  - Hypokalaemia [None]
  - Renal tubular necrosis [None]
